FAERS Safety Report 8890369 (Version 1)
Quarter: 2012Q4

REPORT INFORMATION
  Report Type: 
  Country: AR (occurrence: AR)
  Receive Date: 20121107
  Receipt Date: 20121107
  Transmission Date: 20130627
  Serious: Yes (Other)
  Sender: FDA-Public Use
  Company Number: PHHY2012AR101714

PATIENT
  Sex: Female

DRUGS (1)
  1. GLIVEC [Suspect]
     Indication: CHRONIC MYELOID LEUKAEMIA
     Dosage: 600 mg, daily
     Dates: start: 201006

REACTIONS (3)
  - Cardiac disorder [Recovering/Resolving]
  - Blood pressure fluctuation [Recovering/Resolving]
  - Hypertension [Recovering/Resolving]
